FAERS Safety Report 12448756 (Version 3)
Quarter: 2016Q3

REPORT INFORMATION
  Report Type: Spontaneous
  Country: US (occurrence: US)
  Receive Date: 20160608
  Receipt Date: 20160920
  Transmission Date: 20161109
  Serious: Yes (Other)
  Sender: FDA-Public Use
  Company Number: US-JNJFOC-20160604938

PATIENT
  Age: 88 Year
  Sex: Male

DRUGS (1)
  1. XARELTO [Suspect]
     Active Substance: RIVAROXABAN
     Indication: THROMBOSIS PROPHYLAXIS
     Route: 048
     Dates: start: 20130406, end: 20130622

REACTIONS (2)
  - Optic ischaemic neuropathy [Recovering/Resolving]
  - Optic disc haemorrhage [Recovering/Resolving]

NARRATIVE: CASE EVENT DATE: 20130507
